FAERS Safety Report 11520162 (Version 1)
Quarter: 2015Q3

REPORT INFORMATION
  Report Type: Spontaneous
  Country: US (occurrence: US)
  Receive Date: 20150918
  Receipt Date: 20150918
  Transmission Date: 20151125
  Serious: No
  Sender: FDA-Public Use
  Company Number: US-RB-072257-15

PATIENT

DRUGS (4)
  1. PSUEDOEPHEDRINE [Concomitant]
     Indication: PRODUCT USED FOR UNKNOWN INDICATION
     Dosage: . DOSING UNKNOWN.,FREQUENCY UNK
     Route: 065
  2. ALBUTERAL [Concomitant]
     Active Substance: ALBUTEROL
     Indication: PRODUCT USED FOR UNKNOWN INDICATION
     Dosage: . DOSING UNKNOWN.,FREQUENCY UNK
     Route: 065
  3. MUCINEX [Suspect]
     Active Substance: GUAIFENESIN
     Indication: PRODUCT USED FOR UNKNOWN INDICATION
     Dosage: 1200MG. AMOUNT USED: 4 IN TOTAL; TOOK PRODUCT LAST ON 22-DEC-2014.,BID
     Route: 065
     Dates: start: 20141221
  4. CLAUDADINE [Concomitant]
     Indication: BLOOD PRESSURE MEASUREMENT
     Dosage: . DOSING UNKNOWN.,FREQUENCY UNK
     Route: 065

REACTIONS (1)
  - Dizziness [Not Recovered/Not Resolved]

NARRATIVE: CASE EVENT DATE: 20141222
